FAERS Safety Report 10862912 (Version 1)
Quarter: 2015Q1

REPORT INFORMATION
  Report Type: Spontaneous
  Country: JP (occurrence: None)
  Receive Date: 20150219
  Receipt Date: 20150219
  Transmission Date: 20150721
  Serious: Yes (Other)
  Sender: FDA-Public Use
  Company Number: 2015JUB00040

PATIENT
  Age: 44 Year
  Sex: Female

DRUGS (3)
  1. CISPLATIN. [Concomitant]
     Active Substance: CISPLATIN
  2. DOXORUBICIN [Concomitant]
     Active Substance: DOXORUBICIN
  3. METHYLPREDNISOLONE (METHYLPREDNISOLONE) UNKNOWN [Suspect]
     Active Substance: METHYLPREDNISOLONE
     Indication: THYMOMA

REACTIONS (3)
  - Myasthenia gravis crisis [None]
  - Thymoma malignant recurrent [None]
  - Thrombocytopenia [None]
